FAERS Safety Report 19360289 (Version 2)
Quarter: 2021Q2

REPORT INFORMATION
  Report Type: Report from Study
  Country: US (occurrence: US)
  Receive Date: 20210601
  Receipt Date: 20210625
  Transmission Date: 20210717
  Serious: Yes (Hospitalization, Other)
  Sender: FDA-Public Use
  Company Number: US-GILEAD-2021-0530568

PATIENT
  Sex: Male

DRUGS (3)
  1. AZTREONAM LYSINE [Suspect]
     Active Substance: AZTREONAM LYSINE
     Indication: CYSTIC FIBROSIS
     Dosage: 75 MG, TID 28 DAYS ON/ 28 DAYS OFF
     Route: 055
  2. TRIKAFTA [Concomitant]
     Active Substance: ELEXACAFTOR\IVACAFTOR\TEZACAFTOR
     Dosage: 100/50/75 MG + 150 MG TAB  2 ORANGE TABS AT AM + 1 BLUE PM P.O. AM + PM
  3. COVID?19 VACCINE [Concomitant]

REACTIONS (8)
  - COVID-19 [Unknown]
  - Dehydration [Unknown]
  - Loss of consciousness [Unknown]
  - Insomnia [Unknown]
  - Nausea [Unknown]
  - Vomiting [Recovering/Resolving]
  - Gastric disorder [Unknown]
  - Malaise [Unknown]

NARRATIVE: CASE EVENT DATE: 2021
